FAERS Safety Report 14952457 (Version 3)
Quarter: 2018Q3

REPORT INFORMATION
  Report Type: Spontaneous
  Country: US (occurrence: US)
  Receive Date: 20180530
  Receipt Date: 20180724
  Transmission Date: 20181010
  Serious: No
  Sender: FDA-Public Use
  Company Number: US-PFIZER INC-2018215395

PATIENT
  Age: 66 Year
  Sex: Female

DRUGS (2)
  1. XELJANZ [Suspect]
     Active Substance: TOFACITINIB CITRATE
     Dosage: 5 MG, 2X/DAY
     Route: 048
     Dates: end: 2018
  2. XELJANZ [Suspect]
     Active Substance: TOFACITINIB CITRATE
     Dosage: 5 MG, 2X/DAY
     Route: 048
     Dates: start: 2018, end: 20180630

REACTIONS (7)
  - Blood cholesterol increased [Unknown]
  - Blood pressure increased [Unknown]
  - Vulvovaginal burning sensation [Unknown]
  - Groin pain [Unknown]
  - Dysuria [Unknown]
  - Arthralgia [Unknown]
  - Pain in jaw [Unknown]

NARRATIVE: CASE EVENT DATE: 2018
